FAERS Safety Report 6944009-2 (Version None)
Quarter: 2010Q3

REPORT INFORMATION
  Report Type: 
  Country: None (occurrence: None)
  Receive Date: 20100827
  Receipt Date: 20100818
  Transmission Date: 20110219
  Serious: Yes (Other)
  Sender: FDA-Public Use
  Company Number: FR-BIOGENIDEC-2010BI018815

PATIENT
  Age: 26 Year
  Sex: Female

DRUGS (3)
  1. TYSABRI [Suspect]
     Indication: MULTIPLE SCLEROSIS
     Route: 042
     Dates: start: 20080301, end: 20100505
  2. ATARAX [Concomitant]
     Indication: AGGRESSION
     Route: 048
  3. ATARAX [Concomitant]
     Route: 048
     Dates: start: 20100329

REACTIONS (2)
  - CYTOLYTIC HEPATITIS [None]
  - HEPATOMEGALY [None]
